FAERS Safety Report 9801636 (Version 2)
Quarter: 2014Q1

REPORT INFORMATION
  Report Type: Spontaneous
  Country: FR (occurrence: FR)
  Receive Date: 20140107
  Receipt Date: 20140107
  Transmission Date: 20141002
  Serious: Yes (Other)
  Sender: FDA-Public Use
  Company Number: FR-JNJFOC-20131210762

PATIENT
  Age: 78 Year
  Sex: Male

DRUGS (3)
  1. INFLIXIMAB, RECOMBINANT [Suspect]
     Indication: SUBCORNEAL PUSTULAR DERMATOSIS
     Dosage: RECEIVED 7 INFUSIONS, OVER A PERIOD OF TWO AND HALF YEARS, EVERY 3 TO 6 MONTHS FREQUENCY.
     Route: 042
     Dates: start: 200204
  2. INFLIXIMAB, RECOMBINANT [Suspect]
     Indication: SUBCORNEAL PUSTULAR DERMATOSIS
     Route: 042
     Dates: start: 200503, end: 200607
  3. ETANERCEPT [Suspect]
     Indication: SUBCORNEAL PUSTULAR DERMATOSIS
     Route: 058
     Dates: start: 200409, end: 200412

REACTIONS (3)
  - Ventricular dysfunction [Unknown]
  - Therapeutic response decreased [Unknown]
  - Off label use [Unknown]
